FAERS Safety Report 21346151 (Version 1)
Quarter: 2022Q3

REPORT INFORMATION
  Report Type: Spontaneous
  Country: DE (occurrence: DE)
  Receive Date: 20220917
  Receipt Date: 20220917
  Transmission Date: 20221027
  Serious: Yes (Hospitalization)
  Sender: FDA-Public Use
  Company Number: DE-NOVARTISPH-NVSC2022DE205343

PATIENT
  Age: 84 Year
  Sex: Female
  Weight: 85 kg

DRUGS (11)
  1. METFORMIN [Suspect]
     Active Substance: METFORMIN HYDROCHLORIDE
     Indication: Product used for unknown indication
     Dosage: UNK (1000 MG, 1-0-1-0, TABLETTEN)
     Route: 048
  2. INSULIN GLULISINE [Suspect]
     Active Substance: INSULIN GLULISINE
     Indication: Product used for unknown indication
     Dosage: UNK (1 IE, 12-14-0-10, INJEKTIONS)
     Route: 042
  3. ISOPHANE INSULIN [Suspect]
     Active Substance: INSULIN NOS
     Indication: Product used for unknown indication
     Dosage: UNK (1 IE, 0-0-20-0)
     Route: 058
  4. DIGITOXIN [Concomitant]
     Active Substance: DIGITOXIN
     Indication: Product used for unknown indication
     Dosage: UNK (0.05 MG, 1-0-0-0, TABLETTEN)
     Route: 048
  5. TORSEMIDE [Concomitant]
     Active Substance: TORSEMIDE
     Indication: Product used for unknown indication
     Dosage: UNK (20 MG, 1-1-0-0, TABLETTEN)
     Route: 048
  6. ROSUVASTATIN [Concomitant]
     Active Substance: ROSUVASTATIN
     Indication: Product used for unknown indication
     Dosage: UNK (20 MG, 1-0-0-0, TABLETTEN
     Route: 048
  7. AMLODIPINE BESYLATE [Concomitant]
     Active Substance: AMLODIPINE BESYLATE
     Indication: Product used for unknown indication
     Dosage: UNK (5 MG, 1-0-1-0, TABLETTEN)
     Route: 048
  8. APIXABAN [Concomitant]
     Active Substance: APIXABAN
     Indication: Product used for unknown indication
     Dosage: UNK (2.5 MG, 1-0-1-0, TABLETTEN)
     Route: 048
  9. RAMIPRIL [Concomitant]
     Active Substance: RAMIPRIL
     Indication: Product used for unknown indication
     Dosage: UNK (5 MG, 1-0-1-0, TABLETTEN)
     Route: 048
  10. LEVOTHYROXINE [Concomitant]
     Active Substance: LEVOTHYROXINE
     Indication: Product used for unknown indication
     Dosage: UNK (150 ?G, 1-0-0-0, TABLETTEN)
     Route: 048
  11. NATRIUM [Concomitant]
     Indication: Product used for unknown indication
     Dosage: UNK (150 ?G, 1-0-0-0, TABLETTEN  )
     Route: 048

REACTIONS (3)
  - Product monitoring error [Unknown]
  - Localised infection [Unknown]
  - Gangrene [Unknown]
